FAERS Safety Report 7694487-9 (Version None)
Quarter: 2011Q3

REPORT INFORMATION
  Report Type: 
  Country: None (occurrence: None)
  Receive Date: 20110819
  Receipt Date: 20110809
  Transmission Date: 20111222
  Serious: Yes (Other)
  Sender: FDA-Public Use
  Company Number: PHHY2011US20567

PATIENT
  Sex: Female
  Weight: 77.56 kg

DRUGS (2)
  1. EXJADE [Suspect]
     Indication: APLASIA PURE RED CELL
     Dosage: 500 MG, QD
     Route: 048
     Dates: start: 20110218
  2. CYCLOSPORINE [Interacting]

REACTIONS (5)
  - FATIGUE [None]
  - TOXICITY TO VARIOUS AGENTS [None]
  - NAUSEA [None]
  - DRUG INTERACTION [None]
  - MALAISE [None]
